FAERS Safety Report 9663771 (Version 1)
Quarter: 2013Q4

REPORT INFORMATION
  Report Type: Spontaneous
  Country: FR (occurrence: FR)
  Receive Date: 20131101
  Receipt Date: 20131101
  Transmission Date: 20140711
  Serious: Yes (Hospitalization)
  Sender: FDA-Public Use
  Company Number: PHHY2013FR123781

PATIENT
  Age: 3 Year
  Sex: Female
  Weight: 15 kg

DRUGS (2)
  1. ILARIS [Suspect]
     Indication: JUVENILE IDIOPATHIC ARTHRITIS
     Dosage: 90 MG, QMO
     Route: 042
     Dates: start: 201211
  2. FLUBENDAZOLE [Concomitant]
     Dates: start: 20130921

REACTIONS (1)
  - Hepatocellular injury [Not Recovered/Not Resolved]
